FAERS Safety Report 4487698-7 (Version None)
Quarter: 2004Q4

REPORT INFORMATION
  Report Type: 
  Country: None (occurrence: None)
  Receive Date: 20041028
  Receipt Date: 20041020
  Transmission Date: 20050328
  Serious: Yes (Hospitalization)
  Sender: FDA-Public Use
  Company Number: AE-ABBOTT-04P-166-0278283-00

PATIENT
  Age: 7 Year
  Sex: Male
  Weight: 19 kg

DRUGS (2)
  1. VALPARIN SYRUP [Suspect]
     Indication: CONVULSION
     Route: 048
     Dates: end: 20040913
  2. VALPARIN SYRUP [Suspect]
     Route: 048
     Dates: start: 20010101

REACTIONS (5)
  - DEPRESSED LEVEL OF CONSCIOUSNESS [None]
  - HEPATITIS VIRAL [None]
  - HYPOTONIA [None]
  - OVERDOSE [None]
  - THROMBOCYTOPENIA [None]
